FAERS Safety Report 8311782-0 (Version None)
Quarter: 2012Q1

REPORT INFORMATION
  Report Type: 
  Country: None (occurrence: None)
  Receive Date: 20120315
  Receipt Date: 20110510
  Transmission Date: 20120608
  Serious: No
  Sender: FDA-Public Use
  Company Number: PHHY2011US15089

PATIENT
  Age: 59 Year
  Sex: Female

DRUGS (6)
  1. GILENYA [Suspect]
     Indication: RELAPSING-REMITTING MULTIPLE SCLEROSIS
     Dosage: 0.5 MG, QD, ORAL
     Route: 048
     Dates: start: 20110202, end: 20110210
  2. BENAZEPRIL HYDROCHLORIDE [Concomitant]
  3. ATIVAN [Concomitant]
  4. GLUCOPHAGE [Concomitant]
  5. SOMA [Concomitant]
  6. HYDROCHLOROTHIAZIDE [Concomitant]

REACTIONS (5)
  - INFLUENZA LIKE ILLNESS [None]
  - DIARRHOEA [None]
  - HEADACHE [None]
  - FATIGUE [None]
  - SOMNOLENCE [None]
